FAERS Safety Report 13330941 (Version 1)
Quarter: 2017Q1

REPORT INFORMATION
  Report Type: Spontaneous
  Country: US (occurrence: US)
  Receive Date: 20170313
  Receipt Date: 20170313
  Transmission Date: 20170428
  Serious: Yes (Other)
  Sender: FDA-Public Use
  Company Number: None

PATIENT
  Sex: Female

DRUGS (3)
  1. TRI-LO-SPRINTEC [Suspect]
     Active Substance: ETHINYL ESTRADIOL\NORGESTIMATE
     Dosage: #28 DAILY ORAL
     Route: 048
     Dates: start: 20111229, end: 20120423
  2. LOESTRIN NOS [Suspect]
     Active Substance: ETHINYL ESTRADIOL\NORETHINDRONE ACETATE
     Dosage: #28 DAILY ORAL?
     Route: 048
     Dates: start: 20111229, end: 20120423
  3. TRI-ESTARYLLA [Suspect]
     Active Substance: ETHINYL ESTRADIOL\NORGESTIMATE
     Dosage: #28 DAILY ORAL
     Route: 048
     Dates: start: 20111229, end: 20120423

REACTIONS (2)
  - Weight increased [None]
  - Depression [None]
